FAERS Safety Report 20354146 (Version 2)
Quarter: 2022Q1

REPORT INFORMATION
  Report Type: Report from Study
  Country: UA (occurrence: UA)
  Receive Date: 20220120
  Receipt Date: 20220218
  Transmission Date: 20220424
  Serious: Yes (Hospitalization)
  Sender: FDA-Public Use
  Company Number: UA-NOVOPROD-883120

PATIENT
  Age: 61 Year
  Sex: Male
  Weight: 98 kg

DRUGS (1)
  1. SEMAGLUTIDE [Suspect]
     Active Substance: SEMAGLUTIDE
     Indication: Type 2 diabetes mellitus
     Dosage: 1 MG, QW
     Route: 058
     Dates: start: 20191024

REACTIONS (1)
  - Cholecystitis acute [Recovered/Resolved with Sequelae]

NARRATIVE: CASE EVENT DATE: 20211201
